FAERS Safety Report 5901883-6 (Version None)
Quarter: 2008Q3

REPORT INFORMATION
  Report Type: 
  Country: None (occurrence: None)
  Receive Date: 20080929
  Receipt Date: 20080922
  Transmission Date: 20090109
  Serious: Yes (Other)
  Sender: FDA-Public Use
  Company Number: PHHY2008JP22665

PATIENT
  Age: 42 Year
  Sex: Female

DRUGS (2)
  1. TEGRETOL [Suspect]
     Dosage: UNK
     Route: 048
     Dates: start: 20070701, end: 20070701
  2. VOLTAREN [Suspect]
     Dosage: UNK
     Route: 048
     Dates: start: 20060501, end: 20070801

REACTIONS (1)
  - STEVENS-JOHNSON SYNDROME [None]
